FAERS Safety Report 12155997 (Version 1)
Quarter: 2016Q1

REPORT INFORMATION
  Report Type: Spontaneous
  Country: GB (occurrence: GB)
  Receive Date: 20160307
  Receipt Date: 20160307
  Transmission Date: 20160526
  Serious: Yes (Other)
  Sender: FDA-Public Use
  Company Number: PHFR2016GB001902

PATIENT
  Sex: Female

DRUGS (7)
  1. PREMPAK C [Concomitant]
     Active Substance: ESTROGENS, CONJUGATED\NORGESTREL
     Indication: PRODUCT USED FOR UNKNOWN INDICATION
     Dosage: 1.25 UG, BID
     Route: 065
  2. PENICILLIN V [Concomitant]
     Active Substance: PENICILLIN V
     Indication: PRODUCT USED FOR UNKNOWN INDICATION
     Dosage: 250 MG, BID
     Route: 065
  3. DEFEROXAMINE [Suspect]
     Active Substance: DEFEROXAMINE\DEFEROXAMINE MESYLATE
     Indication: THALASSAEMIA BETA
     Dosage: 30 TO 50 MG/KG, UNK
     Route: 065
     Dates: start: 1984, end: 2012
  4. NOVORAPID [Concomitant]
     Active Substance: INSULIN ASPART
     Indication: PRODUCT USED FOR UNKNOWN INDICATION
     Dosage: VARIABLE DOSE
     Route: 065
  5. LEVOTHYROXINE. [Concomitant]
     Active Substance: LEVOTHYROXINE
     Indication: PRODUCT USED FOR UNKNOWN INDICATION
     Dosage: 125 UG, QD
     Route: 065
  6. CALCITRIOL. [Concomitant]
     Active Substance: CALCITRIOL
     Indication: PRODUCT USED FOR UNKNOWN INDICATION
     Dosage: 0.5 UG, BID
     Route: 065
  7. COLECALCIFEROL [Concomitant]
     Active Substance: CHOLECALCIFEROL
     Indication: PRODUCT USED FOR UNKNOWN INDICATION
     Dosage: 20000 IU/FORTNIGHT
     Route: 065

REACTIONS (5)
  - Abscess [Unknown]
  - Skin reaction [Unknown]
  - Sepsis [Unknown]
  - Cardiac siderosis [Not Recovered/Not Resolved]
  - Infection [Unknown]
